FAERS Safety Report 4524655-6 (Version None)
Quarter: 2004Q4

REPORT INFORMATION
  Report Type: 
  Country: None (occurrence: None)
  Receive Date: 20041211
  Receipt Date: 20041203
  Transmission Date: 20050328
  Serious: Yes (Hospitalization)
  Sender: FDA-Public Use
  Company Number: FR-MERCK-0412FRA00015

PATIENT
  Age: 53 Year
  Sex: Female

DRUGS (3)
  1. SINGULAIR [Suspect]
     Indication: ASTHMA
     Route: 048
     Dates: start: 20030901, end: 20040515
  2. METHYLPREDNISOLONE SODIUM SUCCINATE [Suspect]
     Route: 030
     Dates: start: 20040214, end: 20040223
  3. COSYNTROPIN [Suspect]
     Route: 030
     Dates: start: 20040214, end: 20040223

REACTIONS (1)
  - ALLERGIC GRANULOMATOUS ANGIITIS [None]
